FAERS Safety Report 8004144-7 (Version None)
Quarter: 2011Q4

REPORT INFORMATION
  Report Type: 
  Country: None (occurrence: None)
  Receive Date: 20111223
  Receipt Date: 20111213
  Transmission Date: 20120403
  Serious: Yes (Hospitalization, Other)
  Sender: FDA-Public Use
  Company Number: US-AMGEN-USACT2011066517

PATIENT
  Age: 29 Month
  Sex: Female
  Weight: 14.9 kg

DRUGS (4)
  1. METHOTREXATE SODIUM [Suspect]
     Indication: JUVENILE ARTHRITIS
     Dosage: STARTED BETWEEN 02MAR2010 AND 15MAR2010; 11 MOS (MONTHS)
     Dates: start: 20100301, end: 20110124
  2. MULTIVITAMIN                       /00097801/ [Concomitant]
     Dosage: DAILY
  3. ETANERCEPT [Suspect]
     Indication: JUVENILE ARTHRITIS
     Dosage: 9.5 MOS (MONTHS)
     Dates: start: 20100412, end: 20110124
  4. LEUCOVORIN CALCIUM [Concomitant]
     Dosage: 5 MG, WEEKLY; 11 MONTHS

REACTIONS (3)
  - INFLUENZA [None]
  - ARTHRITIS [None]
  - PNEUMONIA [None]
